FAERS Safety Report 6671033-X (Version None)
Quarter: 2010Q2

REPORT INFORMATION
  Report Type: 
  Country: None (occurrence: None)
  Receive Date: 20100407
  Receipt Date: 20100330
  Transmission Date: 20101027
  Serious: Yes (Other)
  Sender: FDA-Public Use
  Company Number: CA-JNJCH-2010008068

PATIENT
  Age: 45 Year
  Sex: Female
  Weight: 69.4 kg

DRUGS (3)
  1. BENADRYL ALLERGY LIQUI-GELS 25MG [Suspect]
     Indication: ANAPHYLACTIC REACTION
     Dosage: TEXT:THREE TOTAL ONCE
     Route: 048
     Dates: start: 20100328, end: 20100328
  2. LOPRESSOR [Concomitant]
     Indication: HYPERTENSION
     Dosage: TEXT:UNKNOWN
     Route: 065
  3. SYNTHROID [Concomitant]
     Indication: THYROIDECTOMY
     Dosage: TEXT:UNKNOWN
     Route: 065

REACTIONS (4)
  - CONDITION AGGRAVATED [None]
  - DRUG INEFFECTIVE FOR UNAPPROVED INDICATION [None]
  - DYSPNOEA [None]
  - SWOLLEN TONGUE [None]
